FAERS Safety Report 9619243 (Version 1)
Quarter: 2013Q4

REPORT INFORMATION
  Report Type: Spontaneous
  Country: AU (occurrence: NZ)
  Receive Date: 20131014
  Receipt Date: 20131014
  Transmission Date: 20140711
  Serious: Yes (Hospitalization)
  Sender: FDA-Public Use
  Company Number: AU-ELI_LILLY_AND_COMPANY-NZ201310001421

PATIENT
  Sex: Female

DRUGS (2)
  1. OLANZAPINE [Suspect]
     Dosage: 1 DF, UNKNOWN
  2. EFEXOR [Suspect]
     Dosage: 37.5 MG, UNKNOWN
     Dates: start: 1995

REACTIONS (2)
  - Cardiac failure [Unknown]
  - Depression [Unknown]
